FAERS Safety Report 24376069 (Version 1)
Quarter: 2024Q3

REPORT INFORMATION
  Report Type: Spontaneous
  Country: US (occurrence: None)
  Receive Date: 20240927
  Receipt Date: 20240927
  Transmission Date: 20241016
  Serious: Yes (unspecified)
  Sender: Public
  Company Number: None

PATIENT
  Age: 64 Year
  Sex: Female

DRUGS (2)
  1. BOSULIF [Suspect]
     Active Substance: BOSUTINIB MONOHYDRATE
     Indication: Chronic myeloid leukaemia
     Dosage: FREQUENCY : DAILY;?
     Route: 048
  2. BOSULIF [Suspect]
     Active Substance: BOSUTINIB MONOHYDRATE
     Indication: Philadelphia chromosome positive

REACTIONS (13)
  - Blood glucose increased [None]
  - Glycosylated haemoglobin increased [None]
  - Weight loss poor [None]
  - Abdominal discomfort [None]
  - Dysphagia [None]
  - Ankle fracture [None]
  - Fall [None]
  - Elbow operation [None]
  - Hot flush [None]
  - Therapy interrupted [None]
  - Nausea [None]
  - Sleep disorder [None]
  - Fatigue [None]
